FAERS Safety Report 4546109-3 (Version None)
Quarter: 2005Q1

REPORT INFORMATION
  Report Type: 
  Country: None (occurrence: None)
  Receive Date: 20050103
  Receipt Date: 20041220
  Transmission Date: 20050727
  Serious: Yes (Other)
  Sender: FDA-Public Use
  Company Number: 2002056073

PATIENT
  Age: 67 Year
  Sex: Female

DRUGS (4)
  1. ATORVASTATIN ( ATORVASTATIN) [Suspect]
     Indication: HYPERCHOLESTEROLAEMIA
  2. FLUVASTATIN (FLUVASTATIN) [Suspect]
     Indication: HYPERCHOLESTEROLAEMIA
  3. SIMVASTATIN [Suspect]
     Indication: HYPERCHOLESTEROLAEMIA
     Dosage: ORAL
     Route: 048
  4. BEZAFIBRATE (BEZAFIBRATE) [Suspect]
     Indication: HYPERCHOLESTEROLAEMIA

REACTIONS (7)
  - ASTHENIA [None]
  - EYE DISORDER [None]
  - EYELID PTOSIS [None]
  - LIPIDS INCREASED [None]
  - MUSCULAR WEAKNESS [None]
  - OCULAR MYASTHENIA [None]
  - STRABISMUS [None]
